FAERS Safety Report 7115071-1 (Version None)
Quarter: 2010Q4

REPORT INFORMATION
  Report Type: 
  Country: None (occurrence: None)
  Receive Date: 20101122
  Receipt Date: 20101110
  Transmission Date: 20110411
  Serious: No
  Sender: FDA-Public Use
  Company Number: JP-JNJFOC-20101101851

PATIENT
  Sex: Male

DRUGS (2)
  1. DUROTEP MT [Suspect]
     Indication: CANCER PAIN
     Route: 062
  2. DUROTEP MT [Suspect]
     Indication: HEPATIC NEOPLASM MALIGNANT
     Route: 062

REACTIONS (2)
  - DRUG PRESCRIBING ERROR [None]
  - DYSPNOEA [None]
